FAERS Safety Report 7245105-5 (Version None)
Quarter: 2011Q1

REPORT INFORMATION
  Report Type: 
  Country: None (occurrence: None)
  Receive Date: 20110126
  Receipt Date: 20110120
  Transmission Date: 20110831
  Serious: Yes (Other)
  Sender: FDA-Public Use
  Company Number: US-ABBOTT-10P-163-0683359-00

PATIENT
  Sex: Male
  Weight: 97.61 kg

DRUGS (30)
  1. DOCUSATE SODIUM [Concomitant]
     Indication: CONSTIPATION PROPHYLAXIS
  2. FENOFIBRATE [Concomitant]
     Indication: BLOOD CHOLESTEROL INCREASED
  3. FE [Concomitant]
     Indication: ANAEMIA
  4. GABAPENTIN [Concomitant]
     Indication: NEUROPATHY PERIPHERAL
     Dosage: 1 TABLET AM AND NOON, @ IN EVENING
  5. MULTI VIT [Concomitant]
     Indication: PRODUCT USED FOR UNKNOWN INDICATION
  6. ZYRTEC [Concomitant]
     Indication: HYPERSENSITIVITY
  7. LANTUS [Concomitant]
     Indication: TYPE 1 DIABETES MELLITUS
     Dosage: AT HOUR OF SLEEP
  8. LEVOTHYROXINE SODIUM [Concomitant]
     Indication: HYPOTHYROIDISM
  9. HUMIRA [Suspect]
     Indication: ANKYLOSING SPONDYLITIS
     Route: 058
     Dates: start: 20101018
  10. DOXAZOSIN [Concomitant]
     Indication: PROSTATIC DISORDER
  11. ASPIRIN [Concomitant]
     Indication: CARDIAC DISORDER
  12. HUMIRA [Suspect]
     Indication: CROHN'S DISEASE
  13. CHANTIX [Concomitant]
     Indication: SMOKING CESSATION THERAPY
  14. ALBUTEROL [Concomitant]
     Indication: ASTHMA
     Dosage: NEBULIZER
     Route: 055
  15. UNKNOWN OTHER MEDICATIONS [Concomitant]
  16. CLONAZEPAM [Concomitant]
     Indication: INSOMNIA
  17. PENTASA [Concomitant]
     Indication: CROHN'S DISEASE
  18. CINNAMON [Concomitant]
     Indication: DIABETES MELLITUS
  19. CALCIUM PLUS VIT D [Concomitant]
     Indication: PRODUCT USED FOR UNKNOWN INDICATION
  20. VIT C [Concomitant]
     Indication: PRODUCT USED FOR UNKNOWN INDICATION
  21. FLUNISOL [Concomitant]
     Indication: HYPERSENSITIVITY
     Dosage: 25 MG/0.25%
     Route: 045
  22. NOVOLOG [Concomitant]
     Indication: TYPE 1 DIABETES MELLITUS
     Dosage: SKIDING SCALE FOR USE W/MEALS, SNACKS - 5-6 TIMES A DAY
  23. MORPHINE [Concomitant]
     Indication: NEUROPATHY PERIPHERAL
  24. MORPHINE [Concomitant]
     Indication: PAIN
  25. CIPRO [Suspect]
     Indication: OVERGROWTH BACTERIAL
     Dates: start: 20110111, end: 20110119
  26. SULFAMETHOXAZOLE AND TRIMETHOPRIM [Concomitant]
     Indication: SINUSITIS
     Dosage: 800/160 MG
  27. CLONAZEPAM [Concomitant]
     Indication: ANXIETY
     Dosage: AT HOUR OF SLEEP
  28. BUPROPION [Concomitant]
     Indication: BIPOLAR DISORDER
  29. FISH OIL [Concomitant]
     Indication: BLOOD CHOLESTEROL
  30. UNKNOWN BIPOLAR MEDICATION [Concomitant]
     Indication: BIPOLAR DISORDER

REACTIONS (7)
  - GLYCOSYLATED HAEMOGLOBIN INCREASED [None]
  - MALAISE [None]
  - DRUG DOSE OMISSION [None]
  - SINUSITIS [None]
  - NEPHROPATHY [None]
  - HEADACHE [None]
  - OVERGROWTH BACTERIAL [None]
